FAERS Safety Report 7114478-6 (Version None)
Quarter: 2010Q4

REPORT INFORMATION
  Report Type: 
  Country: None (occurrence: None)
  Receive Date: 20101119
  Receipt Date: 20101112
  Transmission Date: 20110411
  Serious: Yes (Death, Hospitalization)
  Sender: FDA-Public Use
  Company Number: JP-AMGEN LTD.-KDC441735

PATIENT

DRUGS (9)
  1. PANITUMUMAB [Suspect]
     Indication: COLORECTAL CANCER
     Dosage: 6 MG/KG, Q2WK
     Route: 041
     Dates: start: 20100903, end: 20100917
  2. OXYCONTIN [Concomitant]
     Route: 048
  3. LASIX [Concomitant]
     Route: 048
  4. FERROUS CITRATE [Concomitant]
     Route: 048
  5. MUCOSTA [Concomitant]
     Route: 048
  6. LOXOPROFEN [Concomitant]
     Route: 048
  7. ALDACTONE [Concomitant]
     Route: 048
  8. PYDOXAL [Concomitant]
     Route: 048
  9. LANSOPRAZOLE OD [Concomitant]
     Route: 048

REACTIONS (2)
  - DEATH [None]
  - SKIN ULCER [None]
